FAERS Safety Report 8540589-4 (Version None)
Quarter: 2012Q3

REPORT INFORMATION
  Report Type: 
  Country: None (occurrence: None)
  Receive Date: 20120713
  Receipt Date: 20120629
  Transmission Date: 20120928
  Serious: Yes (Hospitalization)
  Sender: FDA-Public Use
  Company Number: TCI2012A03489

PATIENT
  Age: 60 Year
  Sex: Male

DRUGS (5)
  1. ACTOS [Suspect]
     Indication: TYPE 2 DIABETES MELLITUS
     Dosage: 15 MG (15 MG, 1 D) PER ORAL
     Route: 048
     Dates: start: 20090725, end: 20110510
  2. INSULINS AND ANALOGUES [Concomitant]
  3. ANGIOTENSIN II ANTAGONISTS [Concomitant]
  4. HMG COA REDUCTASE INHIBITORS [Concomitant]
  5. BIGUANIDES [Concomitant]

REACTIONS (2)
  - CHOLELITHIASIS [None]
  - BILE DUCT STONE [None]
